FAERS Safety Report 9983684 (Version 1)
Quarter: 2014Q1

REPORT INFORMATION
  Report Type: Spontaneous
  Country: US (occurrence: US)
  Receive Date: 20140307
  Receipt Date: 20140307
  Transmission Date: 20141002
  Serious: No
  Sender: FDA-Public Use
  Company Number: US-TEVA-438966USA

PATIENT
  Sex: Female

DRUGS (1)
  1. ETODOLAC [Suspect]
     Indication: ARTHRITIS

REACTIONS (3)
  - Drug ineffective [Unknown]
  - Local swelling [Unknown]
  - Product substitution issue [Unknown]
